FAERS Safety Report 8767056 (Version 1)
Quarter: 2012Q4

REPORT INFORMATION
  Report Type: 
  Country: FR (occurrence: FR)
  Receive Date: 20120903
  Receipt Date: 20120903
  Transmission Date: 20130627
  Serious: Yes (Hospitalization, Other)
  Sender: FDA-Public Use
  Company Number: PHHY2012FR072676

PATIENT
  Age: 40 Year
  Sex: Female

DRUGS (1)
  1. PHENYLBUTAZONE [Suspect]
     Dosage: 5 DF, QD
     Dates: end: 20120112

REACTIONS (8)
  - Skin necrosis [Recovered/Resolved]
  - Cyanosis [Unknown]
  - Extremity necrosis [Recovered/Resolved]
  - Pain in extremity [Recovered/Resolved]
  - Hyperaemia [Recovered/Resolved]
  - Telangiectasia [Recovered/Resolved]
  - Arteriosclerosis [Unknown]
  - Impaired healing [Unknown]
